FAERS Safety Report 6531073-8 (Version None)
Quarter: 2010Q1

REPORT INFORMATION
  Report Type: 
  Country: None (occurrence: None)
  Receive Date: 20100108
  Receipt Date: 20091107
  Transmission Date: 20100710
  Serious: No
  Sender: FDA-Public Use
  Company Number: A0816795A

PATIENT

DRUGS (1)
  1. LOVAZA [Suspect]
     Indication: DRUG USE FOR UNKNOWN INDICATION
     Route: 065

REACTIONS (1)
  - RASH PRURITIC [None]
